FAERS Safety Report 8524805-0 (Version None)
Quarter: 2012Q3

REPORT INFORMATION
  Report Type: 
  Country: None (occurrence: None)
  Receive Date: 20120720
  Receipt Date: 20120712
  Transmission Date: 20120928
  Serious: Yes (Hospitalization, Congenital Anomaly)
  Sender: FDA-Public Use
  Company Number: US-GLAXOSMITHKLINE-A0985276A

PATIENT
  Sex: Male
  Weight: 3.7 kg

DRUGS (1)
  1. PAXIL [Suspect]
     Indication: DEPRESSION
     Dosage: 20MG PER DAY
     Route: 064

REACTIONS (4)
  - SCAPHOCEPHALY [None]
  - CRANIOSYNOSTOSIS [None]
  - FOETAL EXPOSURE DURING PREGNANCY [None]
  - RENAL APLASIA [None]
